FAERS Safety Report 6165728-4 (Version None)
Quarter: 2009Q2

REPORT INFORMATION
  Report Type: 
  Country: None (occurrence: None)
  Receive Date: 20090422
  Receipt Date: 20090409
  Transmission Date: 20091009
  Serious: Yes (Life-Threatening, Hospitalization)
  Sender: FDA-Public Use
  Company Number: WAES 0808FRA00008

PATIENT
  Age: 47 Year
  Sex: Male

DRUGS (12)
  1. CAP VORINOSTAT [Suspect]
     Indication: NON-SMALL CELL LUNG CANCER
     Dosage: 400 MG/DAILY PO ; 400 MG/DAILY
     Route: 048
     Dates: start: 20080623, end: 20080706
  2. CAP VORINOSTAT [Suspect]
     Indication: NON-SMALL CELL LUNG CANCER
     Dosage: 400 MG/DAILY PO ; 400 MG/DAILY
     Route: 048
     Dates: start: 20080715, end: 20080727
  3. CISPLATIN [Suspect]
     Indication: NON-SMALL CELL LUNG CANCER
     Dosage: 146 MG/DAILY IV ; 146 MG/DAILY IV
     Route: 042
     Dates: start: 20080625, end: 20080625
  4. CISPLATIN [Suspect]
     Indication: NON-SMALL CELL LUNG CANCER
     Dosage: 146 MG/DAILY IV ; 146 MG/DAILY IV
     Route: 042
     Dates: start: 20080717, end: 20080717
  5. GEMCITABINE [Suspect]
     Indication: NON-SMALL CELL LUNG CANCER
     Dosage: 2430 MG/DAILY IV ; 2430 MG/DAILY IV ; 2430 MG/DAILY IV ; 2430 MG/DAILY IV
     Route: 042
     Dates: start: 20080625, end: 20080625
  6. GEMCITABINE [Suspect]
     Indication: NON-SMALL CELL LUNG CANCER
     Dosage: 2430 MG/DAILY IV ; 2430 MG/DAILY IV ; 2430 MG/DAILY IV ; 2430 MG/DAILY IV
     Route: 042
     Dates: start: 20080702, end: 20080702
  7. GEMCITABINE [Suspect]
     Indication: NON-SMALL CELL LUNG CANCER
     Dosage: 2430 MG/DAILY IV ; 2430 MG/DAILY IV ; 2430 MG/DAILY IV ; 2430 MG/DAILY IV
     Route: 042
     Dates: start: 20080717, end: 20080717
  8. GEMCITABINE [Suspect]
     Indication: NON-SMALL CELL LUNG CANCER
     Dosage: 2430 MG/DAILY IV ; 2430 MG/DAILY IV ; 2430 MG/DAILY IV ; 2430 MG/DAILY IV
     Route: 042
     Dates: start: 20080724, end: 20080724
  9. FLUTICASONE PROPIONATE (+) SALMETEROL XI [Concomitant]
  10. METOCLOPRAMIDE HYDROCHLORIDE [Concomitant]
  11. ONDANSETRON [Concomitant]
  12. PREDNISOLONE [Concomitant]

REACTIONS (6)
  - CARDIAC DISORDER [None]
  - DISEASE PROGRESSION [None]
  - NON-SMALL CELL LUNG CANCER [None]
  - PLEURAL EFFUSION [None]
  - PULMONARY EMBOLISM [None]
  - VENOUS THROMBOSIS LIMB [None]
